FAERS Safety Report 9498385 (Version 1)
Quarter: 2013Q3

REPORT INFORMATION
  Report Type: Spontaneous
  Country: HR (occurrence: HR)
  Receive Date: 20130904
  Receipt Date: 20130904
  Transmission Date: 20140515
  Serious: Yes (Hospitalization)
  Sender: FDA-Public Use
  Company Number: HR-TEVA-428395ISR

PATIENT
  Age: 38 Year
  Sex: Male

DRUGS (3)
  1. SINERSUL [Suspect]
     Indication: PROPHYLAXIS
     Dosage: 4 DOSAGE FORMS DAILY; 1 DOSAGE FORM = 400 MG SULFAMETHOXAZOLE + 80 MG TRIMETHOPRIM
     Route: 048
     Dates: start: 20121214, end: 20130731
  2. HERPLEX [Suspect]
     Indication: PROPHYLAXIS
     Dosage: 1200 MILLIGRAM DAILY;
     Route: 048
     Dates: start: 20121214, end: 20130731
  3. DIFLUCAN [Suspect]
     Indication: PROPHYLAXIS
     Dosage: 100 MILLIGRAM DAILY;
     Route: 048
     Dates: start: 20121214, end: 20130731

REACTIONS (4)
  - Dyspnoea [Recovered/Resolved]
  - Pyrexia [Recovered/Resolved]
  - Chest pain [Recovered/Resolved]
  - Pneumonia [Recovered/Resolved]
